FAERS Safety Report 8832312 (Version 3)
Quarter: 2013Q4

REPORT INFORMATION
  Report Type: Report from Study
  Country: JP (occurrence: JP)
  Receive Date: 20121009
  Receipt Date: 20131101
  Transmission Date: 20140711
  Serious: Yes (Other)
  Sender: FDA-Public Use
  Company Number: JP-009507513-1210JPN001095

PATIENT
  Age: 71 Year
  Sex: Female
  Weight: 42 kg

DRUGS (14)
  1. REBETOL [Suspect]
     Indication: CHRONIC HEPATITIS C
     Dosage: 200 MG, QD
     Route: 048
     Dates: start: 20101015, end: 20101212
  2. REBETOL [Suspect]
     Dosage: 200 MG, BID
     Route: 048
     Dates: start: 20101213, end: 20110216
  3. REBETOL [Suspect]
     Dosage: 200 MG, QD
     Route: 048
     Dates: start: 20110217, end: 20110222
  4. FERON [Suspect]
     Indication: CHRONIC HEPATITIS C
     Dosage: 3 MILLION-BILLION UNIT
     Route: 041
     Dates: start: 20100712, end: 20100726
  5. FERON [Suspect]
     Dosage: 6 MILLION-BILLION UNIT
     Route: 041
     Dates: start: 20100727, end: 20100809
  6. FERON [Suspect]
     Dosage: 6 MILLION-BILLION UNIT
     Route: 041
     Dates: start: 20100811, end: 20110117
  7. FERON [Suspect]
     Dosage: 6 MILLION-BILLION UNIT
     Route: 041
     Dates: start: 20110118, end: 20110207
  8. FERON [Suspect]
     Dosage: 6 MILLION-BILLION UNIT
     Route: 041
     Dates: start: 20110208, end: 20110218
  9. URSO [Concomitant]
     Indication: CHRONIC HEPATITIS C
     Dosage: 600 MG, DEVIDED DOSE FREQUENCY UNKNOWN
     Route: 048
  10. SILECE [Concomitant]
     Indication: INSOMNIA
     Dosage: 2 MG, QD, DIVIDED DOSE FREQUENCY UNKNOWN
     Route: 048
     Dates: end: 20110222
  11. DAIO-KANZO-TO [Concomitant]
     Indication: CONSTIPATION
     Dosage: 7.5 GRAM, DIVIDED DOSE FREQUENCY UNKNOWN
     Route: 048
  12. BENET [Concomitant]
     Indication: OSTEOPOROSIS
     Dosage: 17.5 MG
     Route: 048
  13. OMEPRAL [Concomitant]
     Indication: GASTROOESOPHAGEAL REFLUX DISEASE
     Dosage: 20 MG, DIVIDED DOSE FREQUENCY UNKNOWN
     Route: 048
  14. CONIEL [Concomitant]
     Indication: HYPERTENSION
     Dosage: 4 MG, DIVIDED DOSE FREQUENCY UNKNOWN
     Route: 048

REACTIONS (17)
  - Hypoalbuminaemia [Recovered/Resolved]
  - White blood cell count decreased [Recovered/Resolved]
  - Hypokalaemia [Recovered/Resolved]
  - Platelet count decreased [Recovered/Resolved]
  - Hypoproteinaemia [Recovered/Resolved]
  - Proteinuria [Recovered/Resolved]
  - Blood urine present [Recovered/Resolved]
  - Nausea [Recovered/Resolved]
  - Depression [Recovering/Resolving]
  - Decreased appetite [Recovered/Resolved]
  - Dizziness [Recovering/Resolving]
  - Nausea [Recovering/Resolving]
  - Platelet count decreased [Recovering/Resolving]
  - Hypokalaemia [Recovered/Resolved]
  - Proteinuria [Recovered/Resolved]
  - Blood urine present [Recovered/Resolved]
  - Anaemia [Recovered/Resolved]
